FAERS Safety Report 20776638 (Version 1)
Quarter: 2022Q2

REPORT INFORMATION
  Report Type: Spontaneous
  Country: US (occurrence: US)
  Receive Date: 20220502
  Receipt Date: 20220502
  Transmission Date: 20220720
  Serious: No
  Sender: FDA-Public Use
  Company Number: US-PFIZER INC-2017497342

PATIENT
  Age: 70 Year
  Sex: Female
  Weight: 175 kg

DRUGS (6)
  1. LYRICA [Suspect]
     Active Substance: PREGABALIN
     Indication: Fibromyalgia
     Dosage: 300 MG, DAILY (EVERY MORNING (QAM), AT NOON, TWO IN THE EVENING AND TWO AT BEDTIME)
     Dates: start: 20171108
  2. LYRICA [Suspect]
     Active Substance: PREGABALIN
     Dosage: 450 MG, DAILY (ONCE CAP MORNING, ONE IN AFTERNOON, TWO IN EVENING, TWO AT BEDTIME]
     Route: 048
     Dates: start: 20190314, end: 2019
  3. LYRICA [Suspect]
     Active Substance: PREGABALIN
     Dosage: 450 MG, DAILY, (ONE CAP IN MORNING, ONE CAP IN AFTERNOON, TWO CAPS IN EVENING, TWO CAPS AT BEDTIME)
     Route: 048
     Dates: start: 20190404
  4. LYRICA [Suspect]
     Active Substance: PREGABALIN
     Dosage: 75 MG, DAILY (5-6 CAPS)
     Route: 048
  5. LYRICA [Suspect]
     Active Substance: PREGABALIN
     Dosage: 75 MG
  6. LYRICA [Suspect]
     Active Substance: PREGABALIN
     Dosage: 75 MG, 4X/DAY (1 CAP PO DAILY IN MORNING, 1 CAP IN AFTERNOON, 2 CAPS IN EVENING, 2 CAPS AT BEDTIME)
     Route: 048

REACTIONS (2)
  - Drug ineffective [Unknown]
  - Intentional product misuse [Unknown]
